FAERS Safety Report 4642470-X (Version None)
Quarter: 2005Q2

REPORT INFORMATION
  Report Type: 
  Country: None (occurrence: None)
  Receive Date: 20050420
  Receipt Date: 20050420
  Transmission Date: 20051028
  Serious: Yes (Life-Threatening, Hospitalization)
  Sender: FDA-Public Use
  Company Number: None

PATIENT
  Age: 55 Year
  Sex: Female
  Weight: 115.2136 kg

DRUGS (6)
  1. LOTREL [Suspect]
     Indication: HYPERTENSION
     Dosage: 10/20 ONCE DAILY
     Dates: start: 20050330, end: 20050410
  2. LOTREL [Suspect]
     Indication: PROPHYLAXIS
     Dosage: 10/20 ONCE DAILY
     Dates: start: 20050330, end: 20050410
  3. LOTREL [Suspect]
     Indication: RENAL DISORDER
     Dosage: 10/20 ONCE DAILY
     Dates: start: 20050330, end: 20050410
  4. NORVASC [Concomitant]
  5. PROTONIX [Concomitant]
  6. GLUCOPHAGE [Concomitant]

REACTIONS (3)
  - GENERALISED OEDEMA [None]
  - RASH PRURITIC [None]
  - URTICARIA [None]
